FAERS Safety Report 12405395 (Version 1)
Quarter: 2016Q2

REPORT INFORMATION
  Report Type: Spontaneous
  Country: US (occurrence: None)
  Receive Date: 20160525
  Receipt Date: 20160525
  Transmission Date: 20160815
  Serious: Yes (Life-Threatening, Hospitalization, Disabling, Other)
  Sender: FDA-Public Use
  Company Number: None

PATIENT
  Age: 44 Year
  Sex: Female
  Weight: 81.65 kg

DRUGS (8)
  1. FEEDING TUBE [Concomitant]
  2. TYLENOL PM [Concomitant]
     Active Substance: ACETAMINOPHEN\DIPHENHYDRAMINE
  3. LATUDA [Suspect]
     Active Substance: LURASIDONE HYDROCHLORIDE
     Indication: PSYCHOTIC DISORDER
  4. HOSPITAL MEDICATION [Concomitant]
  5. RESPIRATOR [Concomitant]
  6. OXYGEN. [Concomitant]
     Active Substance: OXYGEN
  7. LATUDA [Suspect]
     Active Substance: LURASIDONE HYDROCHLORIDE
     Indication: BIPOLAR DISORDER
  8. ASPIRIN. [Concomitant]
     Active Substance: ASPIRIN

REACTIONS (8)
  - Brain oedema [None]
  - Cardio-respiratory arrest [None]
  - Disorientation [None]
  - Liver injury [None]
  - Fall [None]
  - Pulmonary oedema [None]
  - Tremor [None]
  - Renal disorder [None]

NARRATIVE: CASE EVENT DATE: 20160515
